FAERS Safety Report 9265384 (Version 1)
Quarter: 2013Q2

REPORT INFORMATION
  Report Type: Spontaneous
  Country: AU (occurrence: AU)
  Receive Date: 20130501
  Receipt Date: 20130501
  Transmission Date: 20140414
  Serious: Yes (Other)
  Sender: FDA-Public Use
  Company Number: PHHY2013AU041488

PATIENT
  Age: 30 Year
  Sex: Female

DRUGS (1)
  1. ALPRAZOLAM SANDOZ [Suspect]
     Route: 048

REACTIONS (2)
  - Feeling abnormal [Unknown]
  - Drug ineffective [Unknown]
